FAERS Safety Report 18602029 (Version 2)
Quarter: 2020Q4

REPORT INFORMATION
  Report Type: Report from Study
  Country: US (occurrence: US)
  Receive Date: 20201210
  Receipt Date: 20201218
  Transmission Date: 20210114
  Serious: Yes (Hospitalization)
  Sender: FDA-Public Use
  Company Number: US-JNJFOC-20201205370

PATIENT
  Age: 16 Year
  Sex: Female
  Weight: 53.2 kg

DRUGS (44)
  1. METHOTREXATE. [Concomitant]
     Active Substance: METHOTREXATE
     Indication: T-CELL TYPE ACUTE LEUKAEMIA
     Dosage: RECENT DOSE ADMINISTERED ON 11-NOV-2020
     Route: 037
     Dates: start: 20201104
  2. VINCRISTINE [Concomitant]
     Active Substance: VINCRISTINE
     Indication: T-CELL TYPE ACUTE LEUKAEMIA
     Dosage: RECENT DOSE ADMINISTERED ON 05-NOV-2020
     Dates: start: 20201105
  3. 6-MERCAPTOPURINE MONOHYDRATE [Concomitant]
     Active Substance: MERCAPTOPURINE
     Indication: T-CELL TYPE ACUTE LEUKAEMIA
  4. ACETAMINOPHEN. [Concomitant]
     Active Substance: ACETAMINOPHEN
     Route: 048
     Dates: start: 20201024
  5. ERTAPENEM. [Concomitant]
     Active Substance: ERTAPENEM SODIUM
     Indication: DEVICE RELATED INFECTION
     Dates: start: 20201112, end: 20201112
  6. MORPHINE [Concomitant]
     Active Substance: MORPHINE
     Dates: start: 20201103, end: 20201111
  7. OXYCODONE [Concomitant]
     Active Substance: OXYCODONE
     Route: 048
     Dates: start: 20201112
  8. LEVAQUIN [Concomitant]
     Active Substance: LEVOFLOXACIN
     Indication: PROPHYLAXIS
     Route: 048
     Dates: start: 20201025
  9. MESNA. [Concomitant]
     Active Substance: MESNA
     Indication: T-CELL TYPE ACUTE LEUKAEMIA
  10. VANCOMYCIN [Concomitant]
     Active Substance: VANCOMYCIN
     Dates: start: 20201029, end: 20201031
  11. ZYPREXA [Concomitant]
     Active Substance: OLANZAPINE
     Indication: DEPRESSION
     Route: 048
     Dates: start: 20201019
  12. AQUAPHOR [WHITE SOFT PARAFFIN] [Concomitant]
     Dates: start: 20201027
  13. DARATUMUMAB [Suspect]
     Active Substance: DARATUMUMAB
     Indication: T-CELL TYPE ACUTE LEUKAEMIA
     Dosage: MED. KIT: 12700
     Route: 042
     Dates: start: 20201015, end: 20201105
  14. HYDROCORTISONE. [Concomitant]
     Active Substance: HYDROCORTISONE
     Indication: T-CELL TYPE ACUTE LEUKAEMIA
     Dosage: RECENT DOSE ADMINISTERED ON 11-NOV-2020
  15. MICAFUNGIN. [Concomitant]
     Active Substance: MICAFUNGIN SODIUM
     Indication: DEVICE RELATED INFECTION
     Dates: start: 20201030, end: 20201102
  16. POSACONAZOLE [Concomitant]
     Active Substance: POSACONAZOLE
     Indication: ANTIFUNGAL PROPHYLAXIS
     Route: 048
     Dates: start: 20201112, end: 20201112
  17. PEGASPARGASE [Concomitant]
     Active Substance: PEGASPARGASE
     Indication: T-CELL TYPE ACUTE LEUKAEMIA
     Dosage: RECENT DOSE ADMINISTERED ON 31-OCT-2020
  18. CARAFATE [Concomitant]
     Active Substance: SUCRALFATE
     Dates: start: 20201027
  19. KETAMINE [Concomitant]
     Active Substance: KETAMINE
     Dates: start: 20201103, end: 20201111
  20. PYRIDOXINE [Concomitant]
     Active Substance: PYRIDOXINE
     Route: 048
  21. SENNA [SENNA ALEXANDRINA] [Concomitant]
     Active Substance: SENNA LEAF
     Route: 048
     Dates: start: 20201020
  22. ACYCLOVIR [ACICLOVIR] [Concomitant]
     Active Substance: ACYCLOVIR
     Indication: ANTIVIRAL PROPHYLAXIS
     Dates: start: 20201111, end: 20201111
  23. CLOTRIMAZOLE. [Concomitant]
     Active Substance: CLOTRIMAZOLE
     Dosage: 1 OTHER
     Dates: start: 20201030, end: 20201110
  24. CYCLOPHAR [Concomitant]
     Indication: T-CELL TYPE ACUTE LEUKAEMIA
  25. COLACE [Concomitant]
     Active Substance: DOCUSATE SODIUM
     Indication: CONSTIPATION
     Route: 048
     Dates: start: 20201019
  26. MEROPENEM. [Concomitant]
     Active Substance: MEROPENEM
     Indication: DEVICE RELATED INFECTION
     Dates: start: 20201029
  27. ACYCLOVIR [ACICLOVIR] [Concomitant]
     Active Substance: ACYCLOVIR
     Route: 048
     Dates: start: 20201028, end: 20201111
  28. PROVERA [Concomitant]
     Active Substance: MEDROXYPROGESTERONE ACETATE
     Indication: PROPHYLAXIS
     Route: 048
     Dates: start: 20201109
  29. CEFEPIME [Concomitant]
     Active Substance: CEFEPIME HYDROCHLORIDE
     Dates: start: 20201015, end: 20201025
  30. LORAZEPAM. [Concomitant]
     Active Substance: LORAZEPAM
  31. PREDNISONE. [Suspect]
     Active Substance: PREDNISONE
     Indication: T-CELL TYPE ACUTE LEUKAEMIA
     Dosage: RECENT DOSE ADMINISTERED ON 11-NOV-2020
     Dates: start: 20201111
  32. CYTARABINE. [Concomitant]
     Active Substance: CYTARABINE
     Indication: T-CELL TYPE ACUTE LEUKAEMIA
     Dosage: RECENT DOSE ADMINISTERED ON 11-NOV-2020
     Dates: start: 20201105
  33. ERWINA ASPARAGINAS [Concomitant]
     Active Substance: ASPARAGINASE ERWINIA CHRYSANTHEMI
     Indication: T-CELL TYPE ACUTE LEUKAEMIA
  34. MIRALAX [Concomitant]
     Active Substance: POLYETHYLENE GLYCOL 3350
     Indication: CONSTIPATION
     Dates: start: 20201107
  35. MORPHINE [Concomitant]
     Active Substance: MORPHINE
     Dates: start: 20201025
  36. K PHOS NEUTRAL [Concomitant]
     Active Substance: POTASSIUM PHOSPHATE, MONOBASIC\SODIUM PHOSPHATE, DIBASIC, ANHYDROUS\SODIUM PHOSPHATE, MONOBASIC, MONOHYDRATE
     Dates: start: 20201111
  37. DOXORUBICIN [Suspect]
     Active Substance: DOXORUBICIN
     Indication: T-CELL TYPE ACUTE LEUKAEMIA
     Dosage: ONCE?RECENT DOSE ADMINISTERED ON 15-OCT-2020
     Dates: start: 20201015
  38. MICAFUNGIN. [Concomitant]
     Active Substance: MICAFUNGIN SODIUM
     Dates: start: 20201102, end: 20201111
  39. OXYCODONE [Concomitant]
     Active Substance: OXYCODONE
     Route: 048
     Dates: start: 20201026
  40. PREVACID [Concomitant]
     Active Substance: LANSOPRAZOLE
     Route: 048
     Dates: start: 20201023
  41. TRIAMCINOLONE [Concomitant]
     Active Substance: TRIAMCINOLONE
     Dates: start: 20201027
  42. TRIMETHOPRIM. [Concomitant]
     Active Substance: TRIMETHOPRIM
     Indication: INFECTION PROPHYLAXIS
     Route: 048
     Dates: start: 20201017
  43. ZOFRAN [Concomitant]
     Active Substance: ONDANSETRON HYDROCHLORIDE
     Indication: PROPHYLAXIS
     Dates: start: 20201015
  44. CEFEPIME [Concomitant]
     Active Substance: CEFEPIME HYDROCHLORIDE
     Dates: start: 20201029, end: 20201029

REACTIONS (2)
  - Epistaxis [Recovered/Resolved]
  - Hypoxia [Recovered/Resolved]

NARRATIVE: CASE EVENT DATE: 20201124
